FAERS Safety Report 9567522 (Version 2)
Quarter: 2013Q3

REPORT INFORMATION
  Report Type: Spontaneous
  Country: US (occurrence: US)
  Receive Date: 20130930
  Receipt Date: 20130930
  Transmission Date: 20140515
  Serious: No
  Sender: FDA-Public Use
  Company Number: US-AMGEN-USASP2012070512

PATIENT
  Age: 26 Year
  Sex: Female

DRUGS (1)
  1. ENBREL [Suspect]
     Indication: PSORIASIS
     Dosage: 50 MG, 2 TIMES/WK
     Route: 058
     Dates: start: 20120712

REACTIONS (6)
  - Hair disorder [Not Recovered/Not Resolved]
  - Folliculitis [Not Recovered/Not Resolved]
  - Alopecia [Not Recovered/Not Resolved]
  - Immunosuppression [Unknown]
  - Diffuse alopecia [Not Recovered/Not Resolved]
  - Seborrhoeic dermatitis [Unknown]
